FAERS Safety Report 6075985-0 (Version None)
Quarter: 2009Q1

REPORT INFORMATION
  Report Type: 
  Country: None (occurrence: None)
  Receive Date: 20090212
  Receipt Date: 20090203
  Transmission Date: 20090719
  Serious: Yes (Other)
  Sender: FDA-Public Use
  Company Number: PT-SANOFI-SYNTHELABO-A01200901194

PATIENT
  Sex: Female

DRUGS (1)
  1. ELOXATIN [Suspect]
     Dosage: UNK
     Route: 041

REACTIONS (9)
  - APNOEA [None]
  - BRADYCARDIA [None]
  - HYPOTENSION [None]
  - LACRIMATION INCREASED [None]
  - NAUSEA [None]
  - OEDEMA [None]
  - PRODUCT QUALITY ISSUE [None]
  - PRURITUS [None]
  - VOMITING [None]
